FAERS Safety Report 12803894 (Version 1)
Quarter: 2016Q4

REPORT INFORMATION
  Report Type: Spontaneous
  Country: BR (occurrence: BR)
  Receive Date: 20161003
  Receipt Date: 20161003
  Transmission Date: 20170207
  Serious: Yes (Other)
  Sender: FDA-Public Use
  Company Number: BR-NOVOPROD-511994

PATIENT
  Age: 32 Year
  Sex: Female

DRUGS (2)
  1. NOVOLIN N [Suspect]
     Active Substance: INSULIN HUMAN
     Indication: DIABETES MELLITUS
     Dosage: 56 U, TID (34 U/MORNING, 14 U/LUNCH AND 8 U/NIGHT)
     Route: 065
  2. NOVOLIN R [Suspect]
     Active Substance: INSULIN HUMAN
     Indication: DIABETES MELLITUS
     Dosage: 16 U, QD (8 U/MORNING, 4 U/ LUNCH AND 4 U/NIGHT)
     Route: 065

REACTIONS (1)
  - Visual impairment [Not Recovered/Not Resolved]
